FAERS Safety Report 18672719 (Version 1)
Quarter: 2020Q4

REPORT INFORMATION
  Report Type: Spontaneous
  Country: US (occurrence: US)
  Receive Date: 20201228
  Receipt Date: 20201228
  Transmission Date: 20210114
  Serious: No
  Sender: FDA-Public Use
  Company Number: US-GUERBET-US-20200117

PATIENT
  Age: 59 Year
  Sex: Female
  Weight: 140 kg

DRUGS (2)
  1. OPTIRAY 350 [Suspect]
     Active Substance: IOVERSOL
     Indication: COMPUTERISED TOMOGRAM ABDOMEN
     Route: 065
     Dates: start: 20200818, end: 20200818
  2. OPTIRAY 350 [Suspect]
     Active Substance: IOVERSOL
     Indication: COMPUTERISED TOMOGRAM PELVIS

REACTIONS (2)
  - Chest discomfort [Recovered/Resolved]
  - Cough [Recovered/Resolved]

NARRATIVE: CASE EVENT DATE: 20200818
